FAERS Safety Report 21501766 (Version 1)
Quarter: 2022Q4

REPORT INFORMATION
  Report Type: Spontaneous
  Country: US (occurrence: None)
  Receive Date: 20221024
  Receipt Date: 20221024
  Transmission Date: 20230113
  Serious: Yes (Other)
  Sender: FDA-Public Use
  Company Number: None

PATIENT
  Sex: Male

DRUGS (9)
  1. ENBREL [Suspect]
     Active Substance: ETANERCEPT
     Indication: Rheumatoid arthritis
     Route: 058
     Dates: start: 20170627
  2. AMLODIPINE TAB [Concomitant]
  3. ASPIRIN TAB [Concomitant]
  4. ATORVASTATIN [Concomitant]
     Active Substance: ATORVASTATIN
  5. METOPROLOL INJ [Concomitant]
  6. PANTOPRAZOLE [Concomitant]
  7. URSODIOL [Concomitant]
     Active Substance: URSODIOL
  8. VITAMIN D CAP [Concomitant]
  9. ZETIA TAB [Concomitant]

REACTIONS (1)
  - Therapy interrupted [None]
